FAERS Safety Report 13289814 (Version 1)
Quarter: 2017Q1

REPORT INFORMATION
  Report Type: Spontaneous
  Country: US (occurrence: US)
  Receive Date: 20170302
  Receipt Date: 20170302
  Transmission Date: 20170428
  Serious: No
  Sender: FDA-Public Use
  Company Number: US-THE MEDICINES COMPANY-US-MDCO-17-00022

PATIENT
  Sex: Male

DRUGS (2)
  1. ORBACTIV [Suspect]
     Active Substance: ORITAVANCIN
     Indication: CELLULITIS STAPHYLOCOCCAL
  2. ORBACTIV [Suspect]
     Active Substance: ORITAVANCIN
     Indication: CELLULITIS
     Dosage: NOT REPORTED
     Route: 041

REACTIONS (2)
  - Urticaria [Recovering/Resolving]
  - Incorrect drug administration rate [Recovering/Resolving]
